FAERS Safety Report 4485085-9 (Version None)
Quarter: 2004Q4

REPORT INFORMATION
  Report Type: 
  Country: None (occurrence: None)
  Receive Date: 20041021
  Receipt Date: 20041021
  Transmission Date: 20050328
  Serious: Yes (Hospitalization)
  Sender: FDA-Public Use
  Company Number: None

PATIENT
  Age: 70 Year
  Sex: Female
  Weight: 64 kg

DRUGS (1)
  1. REMICADE [Suspect]
     Indication: RHEUMATOID ARTHRITIS
     Dates: start: 20040101, end: 20040901

REACTIONS (4)
  - PERICARDITIS [None]
  - PLEURAL EFFUSION [None]
  - POLYSEROSITIS [None]
  - SYSTEMIC LUPUS ERYTHEMATOSUS [None]
